FAERS Safety Report 4767058-1 (Version None)
Quarter: 2005Q3

REPORT INFORMATION
  Report Type: 
  Country: None (occurrence: None)
  Receive Date: 20050908
  Receipt Date: 20050908
  Transmission Date: 20060218
  Serious: Yes (Life-Threatening, Hospitalization)
  Sender: FDA-Public Use
  Company Number: None

PATIENT
  Age: 82 Year
  Sex: Male
  Weight: 72.6 kg

DRUGS (7)
  1. AMARYL [Suspect]
     Indication: DIABETES MELLITUS
     Dosage: 2 MG DAILY [CHRONIC]
  2. ASPIRIN [Concomitant]
  3. SYNTHROID [Concomitant]
  4. ZESTRIL [Concomitant]
  5. METOPROLOL [Concomitant]
  6. PROTONIX [Concomitant]
  7. ZOCOR [Concomitant]

REACTIONS (5)
  - DIARRHOEA [None]
  - FALL [None]
  - HYPOGLYCAEMIA [None]
  - ORAL INTAKE REDUCED [None]
  - PARAESTHESIA [None]
